FAERS Safety Report 8710012 (Version 2)
Quarter: 2012Q4

REPORT INFORMATION
  Report Type: Report from Study
  Country: US (occurrence: US)
  Receive Date: 20120806
  Receipt Date: 20121102
  Transmission Date: 20130627
  Serious: Yes (Hospitalization, Other)
  Sender: FDA-Public Use
  Company Number: US-ABBOTT-12P-163-0962608-00

PATIENT
  Sex: Female
  Weight: 106.24 kg

DRUGS (3)
  1. HUMIRA 40 MG/0.8 ML PEN [Suspect]
     Indication: CROHN^S DISEASE
     Route: 058
     Dates: start: 20090209
  2. PENTAZA [Concomitant]
     Indication: CROHN^S DISEASE
  3. AMBIEN [Concomitant]
     Indication: POOR QUALITY SLEEP

REACTIONS (5)
  - Enterovesical fistula [Recovered/Resolved]
  - Neuropathy peripheral [Not Recovered/Not Resolved]
  - Vaginal discharge [Recovered/Resolved]
  - Joint swelling [Unknown]
  - Generalised oedema [Unknown]
